FAERS Safety Report 23218676 (Version 1)
Quarter: 2023Q4

REPORT INFORMATION
  Report Type: Report from Study
  Country: CA (occurrence: None)
  Receive Date: 20231122
  Receipt Date: 20231122
  Transmission Date: 20240109
  Serious: Yes (Other)
  Sender: FDA-Public Use
  Company Number: 2023A262627

PATIENT
  Sex: Female

DRUGS (5)
  1. FASENRA [Suspect]
     Active Substance: BENRALIZUMAB
     Indication: Asthma
     Dosage: 30.0MG UNKNOWN
     Route: 058
     Dates: start: 20190522
  2. PREDNISONE [Concomitant]
     Active Substance: PREDNISONE
  3. BRICANYL [Concomitant]
     Active Substance: TERBUTALINE SULFATE
  4. ACLIDINIUM BROMIDE [Concomitant]
     Active Substance: ACLIDINIUM BROMIDE
  5. BRIO-ELLIPTA [Concomitant]

REACTIONS (3)
  - Osteomyelitis [Recovering/Resolving]
  - Hypertension [Unknown]
  - Vital functions abnormal [Unknown]
